FAERS Safety Report 7466983-0 (Version None)
Quarter: 2011Q2

REPORT INFORMATION
  Report Type: 
  Country: None (occurrence: None)
  Receive Date: 20110509
  Receipt Date: 20110411
  Transmission Date: 20111010
  Serious: Yes (Hospitalization, Other)
  Sender: FDA-Public Use
  Company Number: US-BAYER-2011-032455

PATIENT
  Age: 53 Year
  Sex: Female
  Weight: 72.562 kg

DRUGS (21)
  1. YASMIN [Suspect]
     Indication: DYSMENORRHOEA
  2. METFORMIN [Concomitant]
     Dosage: 500 MG, UNK
  3. LEXAPRO [Concomitant]
     Dosage: 20 MG, UNK
  4. LOVAZA [Concomitant]
     Dosage: 1 G, UNK
  5. MICARDIS HCT [Concomitant]
  6. PHENTERMINE [Concomitant]
     Dosage: 30 MG, UNK
  7. LEVOTHYROXINE SODIUM [Concomitant]
     Dosage: 25 ?G, UNK
  8. CYCLOBENZAPRINE [Concomitant]
     Dosage: 10 MG, UNK
  9. CEPHALEXIN [Concomitant]
     Dosage: 500 MG, UNK
  10. NEXIUM [Concomitant]
     Dosage: 40 MG, UNK
  11. YASMIN [Suspect]
     Indication: CONTRACEPTION
     Dosage: UNK UNK, QD
     Dates: start: 20060301, end: 20080401
  12. DROSPIRENONE AND ETHINYL ESTRADIOL [Suspect]
     Indication: DYSMENORRHOEA
  13. ZETIA [Concomitant]
     Dosage: 10 MG, UNK
  14. BUPROPION [Concomitant]
  15. OMACOR [Concomitant]
     Dosage: 1 G, UNK
  16. ACYCLOVIR [Concomitant]
     Dosage: 800 MG, UNK
  17. DROSPIRENONE AND ETHINYL ESTRADIOL [Suspect]
     Indication: CONTRACEPTION
     Dosage: UNK UNK, QD
     Dates: start: 20080401, end: 20090101
  18. OXAPROZIN [Concomitant]
     Dosage: 600 MG, UNK
  19. TRAMADOL HCL [Concomitant]
     Dosage: 50 MG, UNK
  20. ACETAMINOPHEN AND HYDROCODONE BITARTRATE [Concomitant]
  21. NAPROXEN [Concomitant]
     Dosage: 500 MG, UNK

REACTIONS (3)
  - ANXIETY [None]
  - THROMBOSIS [None]
  - PULMONARY EMBOLISM [None]
